FAERS Safety Report 15708796 (Version 1)
Quarter: 2018Q4

REPORT INFORMATION
  Report Type: Spontaneous
  Country: CN (occurrence: CN)
  Receive Date: 20181211
  Receipt Date: 20181211
  Transmission Date: 20190205
  Serious: Yes (Other)
  Sender: FDA-Public Use
  Company Number: CN-ROCHE-2226481

PATIENT
  Age: 72 Year
  Sex: Female

DRUGS (11)
  1. GEFITINIB. [Concomitant]
     Active Substance: GEFITINIB
     Indication: METASTASES TO LUNG
     Route: 048
     Dates: start: 201407
  2. CARBOPLATIN. [Concomitant]
     Active Substance: CARBOPLATIN
     Indication: METASTASES TO LUNG
  3. CARBOPLATIN. [Concomitant]
     Active Substance: CARBOPLATIN
     Indication: ADENOCARCINOMA
     Dosage: AUC=5, FOR 4 CYCLES
     Route: 065
     Dates: start: 20160608
  4. BEVACIZUMAB. [Suspect]
     Active Substance: BEVACIZUMAB
     Indication: METASTASES TO LUNG
  5. PEMETREXED. [Concomitant]
     Active Substance: PEMETREXED
     Indication: ADENOCARCINOMA
     Dosage: FOR 4 CYCLES
     Route: 065
     Dates: start: 20160608
  6. PEMETREXED. [Concomitant]
     Active Substance: PEMETREXED
     Indication: METASTASES TO LUNG
  7. DOCETAXEL. [Concomitant]
     Active Substance: DOCETAXEL
     Indication: METASTASES TO LUNG
  8. OSIMERTINIB. [Concomitant]
     Active Substance: OSIMERTINIB
     Indication: ADENOCARCINOMA
     Route: 065
     Dates: start: 20160314
  9. OSIMERTINIB. [Concomitant]
     Active Substance: OSIMERTINIB
     Indication: METASTASES TO LUNG
  10. BEVACIZUMAB. [Suspect]
     Active Substance: BEVACIZUMAB
     Indication: ADENOCARCINOMA
     Dosage: FOR 3CYCLES
     Route: 065
     Dates: start: 20161125
  11. DOCETAXEL. [Concomitant]
     Active Substance: DOCETAXEL
     Indication: ADENOCARCINOMA
     Dosage: FOR 3CYCLES
     Route: 065
     Dates: start: 20161125

REACTIONS (1)
  - Bone marrow failure [Unknown]
